FAERS Safety Report 6983334-6 (Version None)
Quarter: 2010Q3

REPORT INFORMATION
  Report Type: 
  Country: None (occurrence: None)
  Receive Date: 20100910
  Receipt Date: 20100828
  Transmission Date: 20110219
  Serious: Yes (Hospitalization)
  Sender: FDA-Public Use
  Company Number: AUR-APL-2010-02159

PATIENT
  Sex: Male
  Weight: 124 kg

DRUGS (6)
  1. METOPROLOL TARTRATE [Suspect]
  2. SORAFENIB [Suspect]
     Indication: RENAL CELL CARCINOMA
     Dosage: 16000MG, DAILY, ORAL
     Route: 048
     Dates: start: 20100801
  3. SUNITINIB MALATE [Suspect]
     Indication: RENAL CELL CARCINOMA
     Dosage: 1050MG,
     Dates: start: 20100720
  4. LOTREL [Concomitant]
  5. NIFEDIPINE [Concomitant]
  6. ROSIGLITAZONE MALEATE [Concomitant]

REACTIONS (4)
  - CARDIAC DISORDER [None]
  - CHEST PAIN [None]
  - CORONARY ARTERIAL STENT INSERTION [None]
  - DYSPEPSIA [None]
